FAERS Safety Report 6316696-3 (Version None)
Quarter: 2009Q3

REPORT INFORMATION
  Report Type: 
  Country: None (occurrence: None)
  Receive Date: 20090820
  Receipt Date: 20090813
  Transmission Date: 20100115
  Serious: Yes (Other)
  Sender: FDA-Public Use
  Company Number: NO-BRISTOL-MYERS SQUIBB COMPANY-14740948

PATIENT
  Age: 4 Decade
  Sex: Male

DRUGS (1)
  1. BARACLUDE [Suspect]
     Indication: HEPATITIS B
     Dosage: STANDARD:0.5MGX1;STARTED IN JAN/FEB2009,TAB IN MORNING
     Route: 048
     Dates: start: 20080101

REACTIONS (1)
  - MYELOPROLIFERATIVE DISORDER [None]
